FAERS Safety Report 9257596 (Version 1)
Quarter: 2013Q2

REPORT INFORMATION
  Report Type: Report from Study
  Country: GB (occurrence: GB)
  Receive Date: 20130426
  Receipt Date: 20130426
  Transmission Date: 20140414
  Serious: Yes (Hospitalization)
  Sender: FDA-Public Use
  Company Number: GB-JNJFOC-20130411226

PATIENT
  Age: 29 Year
  Sex: Female
  Weight: 93 kg

DRUGS (8)
  1. REMICADE [Suspect]
     Indication: PSORIASIS
     Route: 042
     Dates: start: 20130131, end: 20130131
  2. REMICADE [Suspect]
     Indication: PSORIASIS
     Route: 042
     Dates: start: 20130117
  3. DOVOBET [Concomitant]
     Route: 065
     Dates: start: 20091203
  4. FOLIC ACID [Concomitant]
     Route: 065
     Dates: start: 20100304
  5. METRONIDAZOLE [Concomitant]
     Route: 065
  6. DOXYCYCLINE [Concomitant]
     Route: 065
  7. METHOTREXATE [Concomitant]
     Route: 065
     Dates: start: 20100303, end: 20130202
  8. ALL OTHER THERAPEUTIC PRODUCTS [Concomitant]
     Route: 065
     Dates: start: 20080101

REACTIONS (5)
  - Chills [Recovered/Resolved]
  - Dizziness [Recovered/Resolved]
  - Infusion related reaction [Recovered/Resolved]
  - Pain in extremity [Unknown]
  - Mobility decreased [Unknown]
